FAERS Safety Report 6845219-5 (Version None)
Quarter: 2010Q3

REPORT INFORMATION
  Report Type: 
  Country: None (occurrence: None)
  Receive Date: 20100715
  Receipt Date: 20070625
  Transmission Date: 20110219
  Serious: Yes (Other)
  Sender: FDA-Public Use
  Company Number: PFIZER INC-2007052947

PATIENT
  Sex: Female
  Weight: 55.454 kg

DRUGS (1)
  1. CHANTIX [Suspect]
     Indication: SMOKING CESSATION THERAPY
     Dates: start: 20070621

REACTIONS (3)
  - BLOOD POTASSIUM DECREASED [None]
  - MUSCLE SPASMS [None]
  - SOMNOLENCE [None]
